FAERS Safety Report 11433138 (Version 1)
Quarter: 2015Q3

REPORT INFORMATION
  Report Type: Report from Study
  Country: ZA (occurrence: ZA)
  Receive Date: 20150829
  Receipt Date: 20150829
  Transmission Date: 20151125
  Serious: Yes (Congenital Anomaly, Other)
  Sender: FDA-Public Use
  Company Number: ZA-AUROBINDO-AUR-APL-2015-07765

PATIENT

DRUGS (2)
  1. CLINDAMYCIN [Concomitant]
     Active Substance: CLINDAMYCIN\CLINDAMYCIN PHOSPHATE
     Indication: PRODUCT USED FOR UNKNOWN INDICATION
     Route: 064
  2. NEVIRAPINE. [Suspect]
     Active Substance: NEVIRAPINE
     Indication: ANTIVIRAL TREATMENT
     Route: 064

REACTIONS (3)
  - Congenital pneumonia [Unknown]
  - Foetal exposure during pregnancy [Unknown]
  - Foetal distress syndrome [Unknown]
